FAERS Safety Report 16358321 (Version 3)
Quarter: 2019Q4

REPORT INFORMATION
  Report Type: Report from Study
  Country: US (occurrence: US)
  Receive Date: 20190527
  Receipt Date: 20191213
  Transmission Date: 20200122
  Serious: No
  Sender: FDA-Public Use
  Company Number: PHEH2019US022190

PATIENT
  Sex: Female

DRUGS (1)
  1. ENTRESTO [Suspect]
     Active Substance: SACUBITRIL\VALSARTAN
     Indication: CARDIAC FAILURE
     Route: 048

REACTIONS (18)
  - Stress [Unknown]
  - Dyspepsia [Unknown]
  - Arthralgia [Unknown]
  - Feeling abnormal [Unknown]
  - Oral discomfort [Unknown]
  - Weight increased [Unknown]
  - Blood potassium decreased [Unknown]
  - Skin burning sensation [Unknown]
  - Dry skin [Unknown]
  - Cough [Unknown]
  - Insomnia [Unknown]
  - Paraesthesia [Unknown]
  - Psoriasis [Unknown]
  - Gastrooesophageal reflux disease [Unknown]
  - Pain in extremity [Unknown]
  - Throat irritation [Unknown]
  - Blood magnesium decreased [Unknown]
  - Gait disturbance [Unknown]
